FAERS Safety Report 19573468 (Version 2)
Quarter: 2021Q3

REPORT INFORMATION
  Report Type: Spontaneous
  Country: US (occurrence: US)
  Receive Date: 20210717
  Receipt Date: 20210803
  Transmission Date: 20211014
  Serious: No
  Sender: FDA-Public Use
  Company Number: US-HETERO-HET2021US01408

PATIENT

DRUGS (1)
  1. LOSARTAN. [Suspect]
     Active Substance: LOSARTAN
     Indication: HYPERTENSION
     Dosage: BOTTLE OF 90 TABLETS
     Route: 048

REACTIONS (3)
  - Product taste abnormal [Unknown]
  - Rash macular [Unknown]
  - Dry skin [Unknown]
